FAERS Safety Report 18332397 (Version 2)
Quarter: 2020Q4

REPORT INFORMATION
  Report Type: Spontaneous
  Country: US (occurrence: US)
  Receive Date: 20200930
  Receipt Date: 20201008
  Transmission Date: 20210113
  Serious: Yes (Other)
  Sender: FDA-Public Use
  Company Number: US-B.I. PHARMACEUTICALS,INC./RIDGEFIELD-2020-BI-050023

PATIENT
  Sex: Male

DRUGS (1)
  1. SPIRIVA RESPIMAT [Suspect]
     Active Substance: TIOTROPIUM BROMIDE
     Indication: PRODUCT USED FOR UNKNOWN INDICATION
     Dosage: 2..5MCG

REACTIONS (5)
  - Respiratory disorder [Unknown]
  - Chronic obstructive pulmonary disease [Unknown]
  - Osteomyelitis [Unknown]
  - Complex regional pain syndrome [Unknown]
  - Osteoporosis [Unknown]
